FAERS Safety Report 4882995-5 (Version None)
Quarter: 2006Q1

REPORT INFORMATION
  Report Type: 
  Country: None (occurrence: None)
  Receive Date: 20060118
  Receipt Date: 20060106
  Transmission Date: 20060701
  Serious: Yes (Other)
  Sender: FDA-Public Use
  Company Number: PHBS2006JP00701

PATIENT

DRUGS (3)
  1. TEGRETOL [Suspect]
     Indication: EPILEPSY
     Route: 048
     Dates: start: 20050701
  2. PL GRAN. [Concomitant]
     Route: 048
  3. INFLUENZA VACCINE [Concomitant]
     Route: 065
     Dates: start: 20051201, end: 20051201

REACTIONS (2)
  - EXCITABILITY [None]
  - RETINAL HAEMORRHAGE [None]
